FAERS Safety Report 4608002-7 (Version None)
Quarter: 2005Q2

REPORT INFORMATION
  Report Type: 
  Country: None (occurrence: None)
  Receive Date: 20050303
  Receipt Date: 20041230
  Transmission Date: 20051028
  Serious: No
  Sender: FDA-Public Use
  Company Number: 211394

PATIENT
  Age: 33 Year
  Sex: Female

DRUGS (5)
  1. XOLAIR [Suspect]
     Indication: ASTHMA
     Dosage: 450 MG, Q2W, SUBCUTANEOUS
     Route: 058
     Dates: start: 20031210
  2. ZOLOFT [Concomitant]
  3. MULTIVITAMINS W B-COMPLEX (VITAMIN B COMPLEX, VITAMINS NOS) [Concomitant]
  4. ALLEGRA [Concomitant]
  5. QVAR (BECLOMETHASONE DIPROPIONATE) [Concomitant]

REACTIONS (1)
  - DRUG EXPOSURE DURING PREGNANCY [None]
